FAERS Safety Report 17072459 (Version 5)
Quarter: 2021Q4

REPORT INFORMATION
  Report Type: Report from Study
  Country: IT (occurrence: IT)
  Receive Date: 20191125
  Receipt Date: 20211021
  Transmission Date: 20220304
  Serious: Yes (Other)
  Sender: FDA-Public Use
  Company Number: IT-ROCHE-2336875

PATIENT
  Age: 56 Year
  Sex: Female
  Weight: 60 kg

DRUGS (28)
  1. TRASTUZUMAB [Suspect]
     Active Substance: TRASTUZUMAB
     Indication: Breast cancer
     Dosage: 6 MILLIGRAM/KILOGRAM, Q3W, EVERY 3 WEEKS
     Route: 041
     Dates: start: 20171116, end: 20180918
  2. TRASTUZUMAB [Suspect]
     Active Substance: TRASTUZUMAB
     Indication: HER2 positive breast cancer
  3. DOCETAXEL [Suspect]
     Active Substance: DOCETAXEL
     Indication: Breast cancer
     Dosage: 75 MILLIGRAM/SQ. METER
     Route: 042
     Dates: start: 20171116, end: 20180306
  4. DOCETAXEL [Suspect]
     Active Substance: DOCETAXEL
     Indication: HER2 positive breast cancer
  5. PERTUZUMAB [Suspect]
     Active Substance: PERTUZUMAB
     Indication: Breast cancer
     Dosage: 420 MILLIGRAM, Q3W, EVERY 3 WEEKS
     Route: 042
     Dates: start: 20171116, end: 20180918
  6. PERTUZUMAB [Suspect]
     Active Substance: PERTUZUMAB
     Indication: HER2 positive breast cancer
  7. ADO-TRASTUZUMAB EMTANSINE [Suspect]
     Active Substance: ADO-TRASTUZUMAB EMTANSINE
     Indication: Breast cancer
     Dosage: 3.6 MILLIGRAM/KILOGRAM, Q3W, MOST RECENT DOSE PRIOR TO THE EVENT: 20181009
     Route: 042
     Dates: start: 20181008, end: 20181107
  8. ADO-TRASTUZUMAB EMTANSINE [Suspect]
     Active Substance: ADO-TRASTUZUMAB EMTANSINE
     Indication: HER2 positive breast cancer
     Dosage: 3.6 MILLIGRAM/KILOGRAM, Q3W, MOST RECENT DOSE PRIOR TO THE EVENT: 20181009
     Route: 065
     Dates: start: 20181008, end: 20191224
  9. TAXOTERE [Suspect]
     Active Substance: DOCETAXEL
     Indication: Breast cancer
     Dosage: 75 MILLIGRAM/SQ. METER, Q3W
     Route: 042
     Dates: start: 20171116, end: 20180305
  10. METOCLOPRAMIDE [Concomitant]
     Active Substance: METOCLOPRAMIDE
     Dosage: UNK, ONGOING CHECKED/ START DATE:11-NOV-2019
     Route: 065
  11. LEVOTHYROXINE SODIUM [Concomitant]
     Active Substance: LEVOTHYROXINE SODIUM
     Dosage: UNK, ONGOING CHECKED
     Route: 065
  12. ONDANSETRON [Concomitant]
     Active Substance: ONDANSETRON
     Dosage: UNK, ONGOING  CHECKED
     Route: 065
  13. IBUPROFEN [Concomitant]
     Active Substance: IBUPROFEN
     Dosage: UNK, ONGOING CHECKED
     Route: 065
     Dates: start: 20190104
  14. IBUPROFEN [Concomitant]
     Active Substance: IBUPROFEN
     Dosage: UNK, ONGOING CHECKED
     Route: 065
     Dates: start: 20190114, end: 20191021
  15. ZOLPIDEM TARTRATE [Concomitant]
     Active Substance: ZOLPIDEM TARTRATE
     Dosage: UNK, ONGOING CHECKED
     Route: 065
     Dates: start: 20180327
  16. BECLOMETHASONE DIPROPIONATE\FORMOTEROL FUMARATE\GLYCOPYRROLATE [Concomitant]
     Active Substance: BECLOMETHASONE DIPROPIONATE\FORMOTEROL FUMARATE\GLYCOPYRROLATE
     Indication: Chronic obstructive pulmonary disease
     Dosage: UNK, ONGOING CHECKED
     Route: 065
     Dates: start: 20190319, end: 20190822
  17. RAMIPRIL [Concomitant]
     Active Substance: RAMIPRIL
     Dosage: UNK, ONGOING CHECKED/ START DATE:01-MAY-2020
     Route: 065
  18. MOVICOL [Concomitant]
     Active Substance: POLYETHYLENE GLYCOL 3350\POTASSIUM CHLORIDE\SODIUM BICARBONATE\SODIUM CHLORIDE
     Dosage: UNK, ONGOING CHECKED/START DATE:11-NOV-2019
     Route: 065
  19. TACHIPIRINA [Concomitant]
     Active Substance: ACETAMINOPHEN
     Dosage: UNK, ONGOING = CHECKED
     Route: 065
     Dates: start: 20190104
  20. TACHIPIRINA [Concomitant]
     Active Substance: ACETAMINOPHEN
     Dosage: UNK, ONGOING CHECKED
     Route: 065
     Dates: start: 20190114
  21. BISOPROLOL FUMARATE [Concomitant]
     Active Substance: BISOPROLOL FUMARATE
     Dosage: UNK, ONGOING CHECKED
     Route: 065
  22. LANSOPRAZOLE [Concomitant]
     Active Substance: LANSOPRAZOLE
     Dosage: UNK, ONGOING CHECKED
     Route: 065
  23. VENLAFAXINE HYDROCHLORIDE [Concomitant]
     Active Substance: VENLAFAXINE HYDROCHLORIDE
     Dosage: UNK, ONGOING  CHECKED/ START DATE:10-JUN-2019
     Route: 065
  24. LYRICA [Concomitant]
     Active Substance: PREGABALIN
     Dosage: UNK, ONGOING CHECKED/ START DATE:10-JUN-2019
     Route: 065
  25. ACETAMINOPHEN\CODEINE PHOSPHATE [Concomitant]
     Active Substance: ACETAMINOPHEN\CODEINE PHOSPHATE
     Dosage: UNK, ONGOING NOT CHECKED
     Route: 065
     Dates: start: 20190318, end: 20201223
  26. DEXAMETHASONE [Concomitant]
     Active Substance: DEXAMETHASONE
     Dosage: UNK, ONGOING NOT CHECKED
     Route: 065
     Dates: start: 20181009, end: 20191224
  27. TAVOR (LORAZEPAM) [Concomitant]
     Active Substance: LORAZEPAM
     Dosage: UNK, ONGOING NOT CHECKED
     Route: 065
     Dates: start: 20190115, end: 20191102
  28. PANTOPRAZOLE SODIUM [Concomitant]
     Active Substance: PANTOPRAZOLE SODIUM
     Dosage: UNK, ONGOING NOT CHECKED
     Route: 065
     Dates: start: 20190115, end: 20191223

REACTIONS (3)
  - Epilepsy [Recovered/Resolved]
  - Headache [Recovered/Resolved]
  - Contusion [Recovered/Resolved]

NARRATIVE: CASE EVENT DATE: 20190530
